FAERS Safety Report 6112344-6 (Version None)
Quarter: 2009Q1

REPORT INFORMATION
  Report Type: 
  Country: None (occurrence: None)
  Receive Date: 20090311
  Receipt Date: 20090311
  Transmission Date: 20090719
  Serious: Yes (Life-Threatening, Hospitalization)
  Sender: FDA-Public Use
  Company Number: None

PATIENT
  Sex: Male
  Weight: 88.4514 kg

DRUGS (2)
  1. CYMBALTA [Suspect]
     Indication: SCIATIC NERVE NEUROPATHY
     Dates: start: 20081025, end: 20081201
  2. CYMBALTA [Suspect]

REACTIONS (5)
  - APPETITE DISORDER [None]
  - CONFUSIONAL STATE [None]
  - HEART RATE IRREGULAR [None]
  - SLEEP DISORDER [None]
  - WEIGHT DECREASED [None]
